FAERS Safety Report 7762986-7 (Version None)
Quarter: 2011Q3

REPORT INFORMATION
  Report Type: 
  Country: None (occurrence: None)
  Receive Date: 20110920
  Receipt Date: 20110916
  Transmission Date: 20111222
  Serious: Yes (Death, Life-Threatening, Hospitalization)
  Sender: FDA-Public Use
  Company Number: DK-JNJFOC-20110903480

PATIENT
  Sex: Male
  Weight: 64 kg

DRUGS (29)
  1. DOXORUBICIN HCL [Suspect]
     Route: 042
     Dates: start: 20110428
  2. NEUPOGEN [Suspect]
     Route: 058
     Dates: start: 20110513
  3. VINBLASTINE SULFATE [Concomitant]
     Route: 042
     Dates: start: 20110312
  4. DOXORUBICIN HCL [Suspect]
     Indication: DIFFUSE LARGE B-CELL LYMPHOMA
     Route: 042
     Dates: start: 20110615
  5. CYCLOPHOSPHAMIDE [Suspect]
     Indication: DIFFUSE LARGE B-CELL LYMPHOMA
     Route: 042
     Dates: start: 20110615
  6. PREDNISONE [Suspect]
     Route: 048
     Dates: start: 20110615
  7. VINCRISTINE [Suspect]
     Route: 042
     Dates: start: 20110405
  8. DOXORUBICIN HCL [Suspect]
     Route: 042
     Dates: start: 20110405
  9. CYCLOPHOSPHAMIDE [Suspect]
     Route: 042
     Dates: start: 20110512
  10. CYCLOPHOSPHAMIDE [Suspect]
     Route: 042
     Dates: start: 20110428
  11. NEUPOGEN [Suspect]
     Indication: DIFFUSE LARGE B-CELL LYMPHOMA
     Route: 058
     Dates: start: 20110429
  12. PREDNISONE [Suspect]
     Route: 048
     Dates: start: 20110405
  13. DOXORUBICIN HCL [Suspect]
     Route: 042
     Dates: start: 20110512
  14. NEUPOGEN [Suspect]
     Route: 058
     Dates: start: 20110406
  15. RITUXIMAB [Suspect]
     Indication: DIFFUSE LARGE B-CELL LYMPHOMA
     Route: 042
     Dates: start: 20110615
  16. VINCRISTINE [Suspect]
     Indication: DIFFUSE LARGE B-CELL LYMPHOMA
     Route: 042
     Dates: start: 20110512
  17. VINBLASTINE SULFATE [Concomitant]
     Route: 042
     Dates: start: 20110428
  18. PREDNISONE [Suspect]
     Indication: DIFFUSE LARGE B-CELL LYMPHOMA
     Route: 048
     Dates: start: 20110428
  19. PREDNISONE [Suspect]
     Route: 048
     Dates: start: 20110512
  20. RITUXIMAB [Suspect]
     Route: 042
     Dates: start: 20110512
  21. NEUPOGEN [Suspect]
     Route: 058
     Dates: start: 20110616
  22. PREDNISONE [Suspect]
     Route: 048
     Dates: start: 20110621, end: 20110623
  23. VINCRISTINE [Suspect]
     Route: 042
     Dates: start: 20110615
  24. RITUXIMAB [Suspect]
     Route: 042
     Dates: start: 20110405
  25. SULFAMETHOXAZOLE AND TRIMETHOPRIM [Concomitant]
     Indication: PROPHYLAXIS
     Route: 065
     Dates: start: 20110307, end: 20110413
  26. CYCLOPHOSPHAMIDE [Suspect]
     Route: 042
     Dates: start: 20110405
  27. PREDNISONE [Suspect]
     Route: 048
     Dates: start: 20110620
  28. RITUXIMAB [Suspect]
     Route: 042
     Dates: start: 20110428
  29. VALACICLOVIR [Concomitant]
     Indication: PROPHYLAXIS
     Dosage: 2/1 DAYS
     Route: 048
     Dates: start: 20110307

REACTIONS (11)
  - FUNGAL INFECTION [None]
  - GASTROENTERITIS NOROVIRUS [None]
  - FEBRILE NEUTROPENIA [None]
  - SEPTIC SHOCK [None]
  - GASTROINTESTINAL PERFORATION [None]
  - SYNCOPE [None]
  - FATIGUE [None]
  - DYSPNOEA [None]
  - INTESTINAL PERFORATION [None]
  - ATRIAL FIBRILLATION [None]
  - DIZZINESS [None]
